FAERS Safety Report 22283078 (Version 6)
Quarter: 2024Q1

REPORT INFORMATION
  Report Type: Report from Study
  Country: IL (occurrence: IL)
  Receive Date: 20230504
  Receipt Date: 20240108
  Transmission Date: 20240410
  Serious: Yes (Death, Life-Threatening, Hospitalization)
  Sender: FDA-Public Use
  Company Number: IL-ABBVIE-22K-082-4427699-00

PATIENT
  Age: 77 Year
  Sex: Male
  Weight: 82 kg

DRUGS (35)
  1. VENETOCLAX [Suspect]
     Active Substance: VENETOCLAX
     Indication: Chronic lymphocytic leukaemia
     Dosage: 20 MG, DOSE INCREASE ACCORDING TO VENETOCLAX DOSE TITRATION SCHEME
     Route: 048
     Dates: start: 20220228, end: 20220306
  2. VENETOCLAX [Suspect]
     Active Substance: VENETOCLAX
     Indication: Chronic lymphocytic leukaemia
     Dosage: 50 MG, DOSE INCREASE ACCORDING TO VENETOCLAX DOSE TITRATION SCHEME
     Route: 048
     Dates: start: 20220307, end: 20220313
  3. VENETOCLAX [Suspect]
     Active Substance: VENETOCLAX
     Indication: Chronic lymphocytic leukaemia
     Dosage: 100 MG, DOSE INCREASE ACCORDING TO VENETOCLAX DOSE TITRATION SCHEME
     Route: 048
     Dates: start: 20220314, end: 20220320
  4. VENETOCLAX [Suspect]
     Active Substance: VENETOCLAX
     Indication: Chronic lymphocytic leukaemia
     Dosage: 200 MG, DOSE INCREASE ACCORDING TO VENETOCLAX DOSE TITRATION SCHEME
     Route: 048
     Dates: start: 20220321, end: 20220327
  5. VENETOCLAX [Suspect]
     Active Substance: VENETOCLAX
     Indication: Chronic lymphocytic leukaemia
     Dosage: 400 MG, DOSE INCREASE ACCORDING TO VENETOCLAX DOSE TITRATION SCHEME?LAST ADMIN DATE: 2022
     Route: 048
     Dates: start: 20220328
  6. VENETOCLAX [Suspect]
     Active Substance: VENETOCLAX
     Indication: Chronic lymphocytic leukaemia
     Dosage: 400 MG,
     Route: 048
     Dates: start: 20220528, end: 20220529
  7. OBINUTUZUMAB [Suspect]
     Active Substance: OBINUTUZUMAB
     Indication: Chronic lymphocytic leukaemia
     Dosage: 1000 MG
     Route: 065
     Dates: start: 20220207, end: 20220208
  8. OBINUTUZUMAB [Suspect]
     Active Substance: OBINUTUZUMAB
     Indication: Chronic lymphocytic leukaemia
     Dosage: 1000 MG
     Route: 065
     Dates: start: 20220221, end: 20220221
  9. OBINUTUZUMAB [Suspect]
     Active Substance: OBINUTUZUMAB
     Indication: Chronic lymphocytic leukaemia
     Dosage: 1000 MG
     Route: 065
     Dates: start: 20220214, end: 20220214
  10. OBINUTUZUMAB [Suspect]
     Active Substance: OBINUTUZUMAB
     Indication: Chronic lymphocytic leukaemia
     Dosage: DURATION TEXT: CYCLE 4
     Route: 065
     Dates: start: 20220307, end: 20220307
  11. OBINUTUZUMAB [Suspect]
     Active Substance: OBINUTUZUMAB
     Indication: Chronic lymphocytic leukaemia
     Dosage: DURATION TEXT: CYCLE 6
     Route: 065
     Dates: start: 20220502, end: 20220502
  12. OBINUTUZUMAB [Suspect]
     Active Substance: OBINUTUZUMAB
     Indication: Chronic lymphocytic leukaemia
     Dosage: DURATION TEXT: CYCLE 8
     Route: 065
     Dates: start: 20220802, end: 20220802
  13. OBINUTUZUMAB [Suspect]
     Active Substance: OBINUTUZUMAB
     Indication: Chronic lymphocytic leukaemia
     Dosage: DURATION TEXT: CYCLE 5
     Route: 065
     Dates: start: 20220404, end: 20220404
  14. OBINUTUZUMAB [Suspect]
     Active Substance: OBINUTUZUMAB
     Indication: Chronic lymphocytic leukaemia
     Dosage: DURATION TEXT: CYCLE 7
     Route: 065
     Dates: start: 20220630, end: 20220630
  15. EUTHYROX [Concomitant]
     Active Substance: LEVOTHYROXINE SODIUM
     Indication: Hypothyroidism
  16. JARDIANCE [Concomitant]
     Active Substance: EMPAGLIFLOZIN
     Indication: Type 2 diabetes mellitus
  17. LIPITOR [Concomitant]
     Active Substance: ATORVASTATIN CALCIUM
     Indication: Blood cholesterol increased
  18. LOSARTAN POTASSIUM [Concomitant]
     Active Substance: LOSARTAN POTASSIUM
     Indication: Hypertension
  19. NEXIUM [Concomitant]
     Active Substance: ESOMEPRAZOLE MAGNESIUM
     Indication: Antacid therapy
  20. METHYLPREDNISOLONE [Concomitant]
     Active Substance: METHYLPREDNISOLONE
     Indication: Allergy prophylaxis
     Dates: start: 20220208, end: 20220208
  21. METHYLPREDNISOLONE [Concomitant]
     Active Substance: METHYLPREDNISOLONE
     Indication: Allergy prophylaxis
     Dates: start: 20220214, end: 20220214
  22. METHYLPREDNISOLONE [Concomitant]
     Active Substance: METHYLPREDNISOLONE
     Indication: Allergy prophylaxis
     Dates: start: 20220207, end: 20220207
  23. METHYLPREDNISOLONE [Concomitant]
     Active Substance: METHYLPREDNISOLONE
     Indication: Allergy prophylaxis
     Dates: start: 20220221, end: 20220221
  24. ACETAMINOPHEN [Concomitant]
     Active Substance: ACETAMINOPHEN
     Indication: Pain management
     Dates: start: 20220208, end: 20220208
  25. ACETAMINOPHEN [Concomitant]
     Active Substance: ACETAMINOPHEN
     Indication: Pain management
     Dates: start: 20220214, end: 20220214
  26. ACETAMINOPHEN [Concomitant]
     Active Substance: ACETAMINOPHEN
     Indication: Pain management
     Dates: start: 20220207, end: 20220207
  27. PROMETHAZINE [Concomitant]
     Active Substance: PROMETHAZINE HYDROCHLORIDE
     Indication: Allergy prophylaxis
     Dates: start: 20220208, end: 20220208
  28. PROMETHAZINE [Concomitant]
     Active Substance: PROMETHAZINE HYDROCHLORIDE
     Indication: Allergy prophylaxis
     Dates: start: 20220214, end: 20220214
  29. PROMETHAZINE [Concomitant]
     Active Substance: PROMETHAZINE HYDROCHLORIDE
     Indication: Allergy prophylaxis
     Dates: start: 20220207, end: 20220207
  30. ALLOPURINOL [Concomitant]
     Active Substance: ALLOPURINOL
     Indication: Prophylaxis
     Dates: start: 20220207, end: 20220207
  31. ALLOPURINOL [Concomitant]
     Active Substance: ALLOPURINOL
     Indication: Prophylaxis
     Dates: start: 20220214, end: 20220214
  32. ALLOPURINOL [Concomitant]
     Active Substance: ALLOPURINOL
     Indication: Prophylaxis
     Dates: start: 20220221, end: 20220221
  33. ALLOPURINOL [Concomitant]
     Active Substance: ALLOPURINOL
     Indication: Prophylaxis
     Dates: start: 20220208, end: 20220208
  34. LORATADINE [Concomitant]
     Active Substance: LORATADINE
     Indication: Allergy prophylaxis
     Dates: start: 20220221, end: 20220221
  35. EVUSHELD [Concomitant]
     Active Substance: CILGAVIMAB\TIXAGEVIMAB
     Indication: COVID-19 prophylaxis
     Dates: start: 20220328

REACTIONS (3)
  - Gastric cancer [Fatal]
  - Neutropenia [Recovered/Resolved]
  - Head injury [Fatal]

NARRATIVE: CASE EVENT DATE: 20220309
